FAERS Safety Report 15233652 (Version 1)
Quarter: 2018Q3

REPORT INFORMATION
  Report Type: Spontaneous
  Country: US (occurrence: US)
  Receive Date: 20180709
  Receipt Date: 20180709
  Transmission Date: 20181010
  Serious: Yes (Death)
  Sender: FDA-Public Use
  Company Number: None

PATIENT
  Age: 55 Year
  Sex: Male

DRUGS (2)
  1. BUPRENORPHINE. [Concomitant]
     Active Substance: BUPRENORPHINE
  2. ADCIRCA [Suspect]
     Active Substance: TADALAFIL
     Dates: start: 20171228, end: 20180702

REACTIONS (1)
  - Death [None]

NARRATIVE: CASE EVENT DATE: 20180702
